FAERS Safety Report 16332523 (Version 3)
Quarter: 2020Q3

REPORT INFORMATION
  Report Type: Spontaneous
  Country: US (occurrence: US)
  Receive Date: 20190520
  Receipt Date: 20200713
  Transmission Date: 20201102
  Serious: No
  Sender: FDA-Public Use
  Company Number: US-PFIZER INC-2019211213

PATIENT
  Age: 48 Year
  Sex: Female

DRUGS (3)
  1. SUTENT [Suspect]
     Active Substance: SUNITINIB MALATE
     Indication: RENAL CANCER
     Dosage: 37.5 MG, CYCLIC (3 WEEKS ON, 1 WEEK OFF)
     Route: 048
  2. SUTENT [Suspect]
     Active Substance: SUNITINIB MALATE
     Dosage: 25 MG, CYCLIC (TAKE 1 CAPSULE (25 MG) BY MOUTH ONCE DAILY, 3 WEEKS ON AND 1 WEEK OFF)
     Route: 048
     Dates: start: 201904
  3. SUTENT [Suspect]
     Active Substance: SUNITINIB MALATE
     Dosage: 25 MG, CYCLIC (TAKE 1 CAPSULE (25MG) BY MOUTH ONCE DAILY, LOWERED FREQUENCY 3 WEEKS TO 2 WEEKS)
     Route: 048

REACTIONS (4)
  - Erythema [Recovered/Resolved]
  - Diarrhoea [Recovered/Resolved]
  - Ageusia [Unknown]
  - Product dose omission in error [Unknown]
